FAERS Safety Report 7737918-8 (Version None)
Quarter: 2011Q3

REPORT INFORMATION
  Report Type: 
  Country: None (occurrence: None)
  Receive Date: 20110908
  Receipt Date: 20110905
  Transmission Date: 20111222
  Serious: Yes (Death, Hospitalization, Other)
  Sender: FDA-Public Use
  Company Number: PHHY2010JP82219

PATIENT
  Sex: Female

DRUGS (3)
  1. IRINOTECAN HCL [Suspect]
     Indication: BREAST CANCER
     Dosage: UNK UKN, UNK
     Dates: start: 20060825, end: 20080611
  2. ZOMETA [Suspect]
     Indication: METASTASES TO BONE
     Dosage: 4 MG, PER ADMINISTRATIONS
     Route: 041
     Dates: start: 20060825, end: 20080711
  3. TS 1 [Suspect]
     Indication: BREAST CANCER
     Dosage: UNK UKN, UNK
     Route: 048
     Dates: start: 20060825, end: 20080611

REACTIONS (22)
  - UVEITIS [None]
  - EYE SWELLING [None]
  - PRIMARY SEQUESTRUM [None]
  - HAEMOGLOBIN DECREASED [None]
  - PYREXIA [None]
  - NEOPLASM MALIGNANT [None]
  - OSTEOMYELITIS [None]
  - PERIORBITAL ABSCESS [None]
  - OCULAR HYPERAEMIA [None]
  - BLOOD ALBUMIN DECREASED [None]
  - NEOPLASM PROGRESSION [None]
  - SINUSITIS [None]
  - CELLULITIS ORBITAL [None]
  - VISUAL ACUITY REDUCED [None]
  - WHITE BLOOD CELL COUNT INCREASED [None]
  - ASPARTATE AMINOTRANSFERASE INCREASED [None]
  - ALANINE AMINOTRANSFERASE INCREASED [None]
  - C-REACTIVE PROTEIN INCREASED [None]
  - GAMMA-GLUTAMYLTRANSFERASE INCREASED [None]
  - OSTEONECROSIS OF JAW [None]
  - BLOOD CREATININE INCREASED [None]
  - BLOOD UREA INCREASED [None]
